FAERS Safety Report 7453413 (Version 2)
Quarter: 2013Q2

REPORT INFORMATION
  Report Type: Spontaneous
  Country: JP (occurrence: JP)
  Receive Date: 20100706
  Receipt Date: 20130624
  Transmission Date: 20140414
  Serious: Yes (Other)
  Sender: FDA-Public Use
  Company Number: PHHY2010JP42149

PATIENT
  Age: 15 Year
  Sex: Male

DRUGS (3)
  1. NEORAL [Suspect]
     Indication: FOCAL SEGMENTAL GLOMERULOSCLEROSIS
     Dosage: 100 MG, UNK
     Route: 048
     Dates: start: 20100612, end: 20100622
  2. PREDONINE [Suspect]
     Indication: FOCAL SEGMENTAL GLOMERULOSCLEROSIS
     Dosage: 50 MG, UNK
     Route: 048
     Dates: start: 20100512
  3. METHYLPREDNISOLONE [Concomitant]
     Indication: FOCAL SEGMENTAL GLOMERULOSCLEROSIS

REACTIONS (1)
  - Duodenal ulcer perforation [Recovered/Resolved]
